FAERS Safety Report 23364252 (Version 1)
Quarter: 2024Q1

REPORT INFORMATION
  Report Type: Spontaneous
  Country: DK (occurrence: DK)
  Receive Date: 20240104
  Receipt Date: 20240104
  Transmission Date: 20240410
  Serious: Yes (Other)
  Sender: FDA-Public Use
  Company Number: None

PATIENT
  Age: 52 Year
  Sex: Female

DRUGS (1)
  1. WEGOVY [Suspect]
     Active Substance: SEMAGLUTIDE
     Indication: Overweight
     Dosage: 1.7 MG, QW
     Dates: start: 202303, end: 20230814

REACTIONS (9)
  - Pruritus genital [Recovered/Resolved]
  - Anal pruritus [Recovered/Resolved]
  - Gingival discomfort [Recovering/Resolving]
  - Gingival blister [Recovering/Resolving]
  - Anorectal discomfort [Recovered/Resolved]
  - Pemphigoid [Recovering/Resolving]
  - Gingival bleeding [Recovering/Resolving]
  - Genital discomfort [Recovered/Resolved]
  - Pruritus [Recovered/Resolved]

NARRATIVE: CASE EVENT DATE: 20230101
